FAERS Safety Report 16259967 (Version 1)
Quarter: 2019Q2

REPORT INFORMATION
  Report Type: Spontaneous
  Country: US (occurrence: US)
  Receive Date: 20190501
  Receipt Date: 20190501
  Transmission Date: 20190711
  Serious: Yes (Hospitalization)
  Sender: FDA-Public Use
  Company Number: US-FRESENIUS KABI-FK201905052

PATIENT
  Age: 69 Year
  Sex: Male

DRUGS (1)
  1. MILRINONE (MANUFACTURER UNKOWN) [Suspect]
     Active Substance: MILRINONE
     Indication: CARDIAC FAILURE

REACTIONS (2)
  - Eosinophilia [Recovered/Resolved]
  - Eosinophilic cystitis [Recovered/Resolved]
